FAERS Safety Report 24781395 (Version 1)
Quarter: 2024Q4

REPORT INFORMATION
  Report Type: Spontaneous
  Country: CH (occurrence: CH)
  Receive Date: 20241227
  Receipt Date: 20241227
  Transmission Date: 20250115
  Serious: Yes (Hospitalization)
  Sender: CHEPLAPHARM
  Company Number: None

PATIENT
  Age: 69 Year
  Sex: Male
  Weight: 44 kg

DRUGS (17)
  1. HYDROXYUREA [Suspect]
     Active Substance: HYDROXYUREA
     Indication: Polycythaemia vera
     Dosage: 500 MG PER DAY FROM MONDAY TILL SATURDAY?DAILY DOSE: 500 MILLIGRAM
     Dates: start: 202101, end: 20231025
  2. HYDROXYUREA [Suspect]
     Active Substance: HYDROXYUREA
     Indication: Polycythaemia vera
     Dosage: INCREASED ?DAILY DOSE: 500 MILLIGRAM
     Route: 048
     Dates: start: 20231026
  3. BESREMI [Suspect]
     Active Substance: ROPEGINTERFERON ALFA-2B-NJFT
     Indication: Polycythaemia vera
     Dates: start: 202101, end: 20230824
  4. NORVASC [Suspect]
     Active Substance: AMLODIPINE BESYLATE
     Dosage: 1-0-0-0?DAILY DOSE: 5 MILLIGRAM
     Route: 048
  5. NALOXONE HYDROCHLORIDE\OXYCODONE HYDROCHLORIDE [Suspect]
     Active Substance: NALOXONE HYDROCHLORIDE\OXYCODONE HYDROCHLORIDE
     Dosage: 5/2.5 MG 1-0-1-0?DAILY DOSE: 2 DOSAGE FORM
     Route: 048
  6. OXYCODONE HYDROCHLORIDE [Suspect]
     Active Substance: OXYCODONE HYDROCHLORIDE
     Dosage: 5 MG CAPSULES 1-2 CAPSULES EVERY 2 HOURS IF REQUIRED
     Route: 048
  7. ASPIRIN [Concomitant]
     Active Substance: ASPIRIN
     Dosage: 1-0-0-0?DAILY DOSE: 100 MILLIGRAM
     Route: 048
  8. Calcimagon D3 Forte [Concomitant]
     Dosage: 1-0-0-0?DAILY DOSE: 1 DOSAGE FORM
     Route: 048
  9. Bioflorin [Concomitant]
     Dosage: 1-1-1-0?DAILY DOSE: 3 DOSAGE FORM
     Route: 048
  10. FRESUBIN [Concomitant]
     Active Substance: AMINO ACIDS\DEXTROSE\ELECTROLYTES NOS\SOYBEAN OIL\VITAMINS
     Dosage: DAILY DOSE: 2 DOSAGE FORM
     Route: 048
  11. NEBIVOLOL [Concomitant]
     Active Substance: NEBIVOLOL
     Dosage: 0.5-0-0-0?DAILY DOSE: 2.5 MILLIGRAM
     Route: 048
  12. ACETAMINOPHEN [Concomitant]
     Active Substance: ACETAMINOPHEN
     Dosage: DAILY DOSE: 2000 MILLIGRAM
     Route: 048
  13. Novalgin [Concomitant]
     Dosage: 500 MG UP TO 4X DAILY IF REQUIRED?DAILY DOSE: 2000 MILLIGRAM
     Route: 048
  14. Paspertin [Concomitant]
     Dosage: 10 MG UP TO 3X DAILY IF REQUIRED?DAILY DOSE: 30 MILLIGRAM
     Route: 048
  15. MOVICOL [Concomitant]
     Active Substance: POLYETHYLENE GLYCOL 3350\POTASSIUM CHLORIDE\SODIUM BICARBONATE\SODIUM CHLORIDE
     Dosage: UP TO 1X DAILY IF REQUIRED?DAILY DOSE: 1 DOSAGE FORM
     Route: 048
  16. SODIUM PICOSULFATE [Concomitant]
     Active Substance: SODIUM PICOSULFATE
     Dosage: 8-10 DROPS IF REQUIRED
     Route: 048
  17. INREBIC [Concomitant]
     Active Substance: FEDRATINIB HYDROCHLORIDE
     Indication: Polycythaemia vera
     Dosage: DAILY DOSE: 200 MILLIGRAM
     Dates: start: 20230825

REACTIONS (3)
  - Malnutrition [Recovering/Resolving]
  - Abnormal loss of weight [Recovering/Resolving]
  - Oesophagitis [Unknown]

NARRATIVE: CASE EVENT DATE: 20230823
